FAERS Safety Report 4642192-5 (Version None)
Quarter: 2005Q2

REPORT INFORMATION
  Report Type: 
  Country: None (occurrence: None)
  Receive Date: 20050421
  Receipt Date: 20050314
  Transmission Date: 20051028
  Serious: Yes (Death)
  Sender: FDA-Public Use
  Company Number: 2005S1001229

PATIENT
  Age: 47 Year
  Sex: Male
  Weight: 137.8935 kg

DRUGS (6)
  1. CLOZAPINE [Suspect]
     Indication: SCHIZOPHRENIA, PARANOID TYPE
     Dosage: 400 MG; HS; PO
     Route: 048
     Dates: start: 20030319, end: 20050101
  2. ATORVASTATIN CALCIUM [Concomitant]
  3. AVANDAMET [Concomitant]
  4. HYDROCHLOROTHIAZIDE [Concomitant]
  5. RANITIDINE [Concomitant]
  6. INSULIN HUMAN/INSULIN HUMAN INJECTION [Concomitant]

REACTIONS (1)
  - DEATH [None]
